FAERS Safety Report 19829785 (Version 1)
Quarter: 2021Q3

REPORT INFORMATION
  Report Type: Spontaneous
  Country: US (occurrence: US)
  Receive Date: 20210914
  Receipt Date: 20210914
  Transmission Date: 20211014
  Serious: Yes (Hospitalization)
  Sender: FDA-Public Use
  Company Number: None

PATIENT
  Age: 39 Year
  Sex: Male

DRUGS (2)
  1. NAXOLONE [Suspect]
     Active Substance: NALOXONE
     Indication: DRUG DEPENDENCE
     Dosage: ?          OTHER FREQUENCY:UNKNOWN;?
  2. N/A [Concomitant]
     Active Substance: UNSPECIFIED INGREDIENT

REACTIONS (1)
  - Implant site pain [None]

NARRATIVE: CASE EVENT DATE: 20210911
